FAERS Safety Report 7034022-1 (Version None)
Quarter: 2010Q4

REPORT INFORMATION
  Report Type: 
  Country: None (occurrence: None)
  Receive Date: 20101006
  Receipt Date: 20100929
  Transmission Date: 20110411
  Serious: Yes (Hospitalization)
  Sender: FDA-Public Use
  Company Number: 012897

PATIENT
  Sex: Female
  Weight: 52 kg

DRUGS (7)
  1. CERTOLIZUMAB PEGOL (CERTOLIZUMAB PEGOL) [Suspect]
     Indication: RHEUMATOID ARTHRITIS
     Dosage: (200 MG 1X/2 WEEKS SUBCUTANEOUS)
     Route: 058
     Dates: start: 20090426, end: 20100520
  2. CERTOLIZUMAB PEGOL (CERTOLIZUMAB PEGOL) [Suspect]
     Indication: RHEUMATOID ARTHRITIS
     Dosage: (200 MG 1X/2 WEEKS SUBCUTANEOUS)
     Route: 058
     Dates: start: 20100621
  3. ARAVA [Concomitant]
  4. TENORDATE [Concomitant]
  5. ANTIHYPERTENSIVES [Concomitant]
  6. VOGALENE [Concomitant]
  7. ACETAMINOPHEN [Concomitant]

REACTIONS (2)
  - PYELONEPHRITIS ACUTE [None]
  - URINARY TRACT INFECTION ENTEROCOCCAL [None]
